FAERS Safety Report 13993332 (Version 3)
Quarter: 2017Q4

REPORT INFORMATION
  Report Type: Spontaneous
  Country: PH (occurrence: PH)
  Receive Date: 20170920
  Receipt Date: 20171016
  Transmission Date: 20180321
  Serious: Yes (Other)
  Sender: FDA-Public Use
  Company Number: PHHY2017PH135768

PATIENT
  Age: 36 Year
  Sex: Male

DRUGS (1)
  1. BALANCED SALT SOLUTION [Suspect]
     Active Substance: CALCIUM CHLORIDE\MAGNESIUM CHLORIDE\POTASSIUM CHLORIDE\SODIUM ACETATE\SODIUM CHLORIDE\SODIUM CITRATE
     Indication: EYE IRRIGATION
     Route: 031

REACTIONS (3)
  - Eye swelling [Recovering/Resolving]
  - Eye haemorrhage [Recovering/Resolving]
  - Eye operation complication [Recovering/Resolving]
